FAERS Safety Report 22900435 (Version 2)
Quarter: 2023Q4

REPORT INFORMATION
  Report Type: Report from Study
  Country: IT (occurrence: IT)
  Receive Date: 20230904
  Receipt Date: 20231101
  Transmission Date: 20240110
  Serious: Yes (Hospitalization, Other)
  Sender: FDA-Public Use
  Company Number: IT-UCBSA-2023043344

PATIENT
  Sex: Female

DRUGS (1)
  1. VIMPAT [Suspect]
     Active Substance: LACOSAMIDE
     Indication: Product used for unknown indication
     Dosage: 1X 100MG TABLET IN THE MORNING AND 2X 100MG TABLETS IN THE EVENING

REACTIONS (4)
  - Cerebrovascular accident [Unknown]
  - Antiphospholipid syndrome [Unknown]
  - Thrombosis [Unknown]
  - Product use issue [Unknown]

NARRATIVE: CASE EVENT DATE: 20230819
